FAERS Safety Report 17260237 (Version 1)
Quarter: 2020Q1

REPORT INFORMATION
  Report Type: Spontaneous
  Country: US (occurrence: US)
  Receive Date: 20200112
  Receipt Date: 20200112
  Transmission Date: 20200409
  Serious: No
  Sender: FDA-Public Use
  Company Number: US-EMCURE PHARMACEUTICALS LTD-2020-EPL-0004

PATIENT
  Age: 38 Month
  Sex: Male

DRUGS (1)
  1. PAROMOMYCIN SULFATE. [Suspect]
     Active Substance: PAROMOMYCIN SULFATE
     Indication: PRODUCT USED FOR UNKNOWN INDICATION
     Dosage: 250 MILLIGRAM

REACTIONS (3)
  - No adverse event [Unknown]
  - Product prescribing error [Unknown]
  - Wrong technique in product usage process [Unknown]
